FAERS Safety Report 15169801 (Version 1)
Quarter: 2018Q3

REPORT INFORMATION
  Report Type: Spontaneous
  Country: IS (occurrence: IS)
  Receive Date: 20180720
  Receipt Date: 20180720
  Transmission Date: 20181010
  Serious: Yes (Other)
  Sender: FDA-Public Use
  Company Number: IS-ACCORD-069582

PATIENT
  Age: 67 Year
  Sex: Male

DRUGS (3)
  1. BICALUTAMIDE. [Suspect]
     Active Substance: BICALUTAMIDE
     Indication: PROSTATE CANCER STAGE III
  2. ENALAPRIL [Concomitant]
     Active Substance: ENALAPRIL
     Dosage: TAKING FOR A FEW YEARS
  3. GOSERELIN/GOSERELIN ACETATE [Concomitant]
     Indication: PROSTATE CANCER STAGE III
     Route: 058

REACTIONS (2)
  - Arthralgia [Recovered/Resolved]
  - Drug-induced liver injury [Recovering/Resolving]
